FAERS Safety Report 5328021-5 (Version None)
Quarter: 2007Q2

REPORT INFORMATION
  Report Type: 
  Country: None (occurrence: None)
  Receive Date: 20070517
  Receipt Date: 20070507
  Transmission Date: 20071010
  Serious: Yes (Other)
  Sender: FDA-Public Use
  Company Number: BR-PFIZER INC-2007038419

PATIENT
  Sex: Female

DRUGS (2)
  1. LIPITOR [Suspect]
     Indication: HYPERCHOLESTEROLAEMIA
     Route: 048
     Dates: start: 20040301, end: 20051001
  2. HARMONET [Concomitant]
     Route: 048
     Dates: start: 20020101, end: 20061201

REACTIONS (5)
  - BILIARY COLIC [None]
  - HAEMATEMESIS [None]
  - HEPATITIS [None]
  - NAUSEA [None]
  - VOMITING [None]
